FAERS Safety Report 4422231-7 (Version None)
Quarter: 2004Q3

REPORT INFORMATION
  Report Type: 
  Country: None (occurrence: None)
  Receive Date: 20040806
  Receipt Date: 20040728
  Transmission Date: 20050211
  Serious: Yes (Congenital Anomaly)
  Sender: FDA-Public Use
  Company Number: 2004225736US

PATIENT
  Age: 1 Day
  Sex: Male
  Weight: 3.6 kg

DRUGS (1)
  1. CYTOTEC [Suspect]
     Indication: LABOUR INDUCTION
     Dates: start: 20040525, end: 20040525

REACTIONS (2)
  - FLOPPY INFANT [None]
  - MATERNAL DRUGS AFFECTING FOETUS [None]
